FAERS Safety Report 10099946 (Version 2)
Quarter: 2014Q2

REPORT INFORMATION
  Report Type: Spontaneous
  Country: US (occurrence: US)
  Receive Date: 20140423
  Receipt Date: 20140423
  Transmission Date: 20141212
  Serious: Yes (Hospitalization)
  Sender: FDA-Public Use
  Company Number: US-GILEAD-2013-0073819

PATIENT
  Age: 77 Year
  Sex: Female

DRUGS (11)
  1. LETAIRIS [Suspect]
     Indication: PULMONARY ARTERIAL HYPERTENSION
     Dosage: 5 MG, UNK
     Dates: start: 20121023
  2. LASIX                              /00032601/ [Concomitant]
  3. NEXIUM                             /01479302/ [Concomitant]
  4. LANTUS [Concomitant]
  5. PROVENTIL                          /00139501/ [Concomitant]
  6. SINGULAIR [Concomitant]
  7. PLAVIX [Concomitant]
  8. RANITIDINE [Concomitant]
  9. NOVOLOG [Concomitant]
  10. METOPROLOL [Concomitant]
  11. DUONEB [Concomitant]

REACTIONS (1)
  - Peripheral swelling [Recovered/Resolved]
